FAERS Safety Report 9830887 (Version 1)
Quarter: 2014Q1

REPORT INFORMATION
  Report Type: Spontaneous
  Country: DE (occurrence: DE)
  Receive Date: 20140120
  Receipt Date: 20140120
  Transmission Date: 20141002
  Serious: Yes (Other)
  Sender: FDA-Public Use
  Company Number: DE-ABBVIE-14P-062-1191954-00

PATIENT
  Sex: 0

DRUGS (1)
  1. ERGENYL [Suspect]
     Indication: MATERNAL EXPOSURE TIMING UNSPECIFIED
     Route: 064

REACTIONS (4)
  - Subdural haemorrhage [Unknown]
  - Foetal exposure during pregnancy [Unknown]
  - Subdural hygroma [Unknown]
  - Child abuse [Unknown]
